FAERS Safety Report 6221134-5 (Version None)
Quarter: 2009Q2

REPORT INFORMATION
  Report Type: 
  Country: None (occurrence: None)
  Receive Date: 20090610
  Receipt Date: 20090601
  Transmission Date: 20091009
  Serious: Yes (Other)
  Sender: FDA-Public Use
  Company Number: US-ABBOTT-09P-163-0577219-00

PATIENT
  Sex: Female

DRUGS (2)
  1. HUMIRA [Suspect]
     Indication: RHEUMATOID ARTHRITIS
     Dates: start: 20050124, end: 20090524
  2. HUMIRA [Suspect]
     Dates: start: 20090101

REACTIONS (2)
  - CONGENITAL FOOT MALFORMATION [None]
  - DRUG DOSE OMISSION [None]
